FAERS Safety Report 10541701 (Version 1)
Quarter: 2014Q4

REPORT INFORMATION
  Report Type: Spontaneous
  Country: US (occurrence: US)
  Receive Date: 20141024
  Receipt Date: 20141024
  Transmission Date: 20150529
  Serious: No
  Sender: FDA-Public Use
  Company Number: US-ALLERGAN-1406287US

PATIENT
  Sex: Female

DRUGS (2)
  1. ALPHAGAN P [Suspect]
     Active Substance: BRIMONIDINE TARTRATE
     Indication: INTRAOCULAR PRESSURE INCREASED
     Dosage: 2 GTT, BID
     Route: 047
     Dates: start: 20140227
  2. LATANAPROST [Concomitant]
     Indication: INTRAOCULAR PRESSURE INCREASED

REACTIONS (2)
  - Inappropriate schedule of drug administration [Unknown]
  - Vision blurred [Unknown]
